FAERS Safety Report 14313283 (Version 1)
Quarter: 2017Q4

REPORT INFORMATION
  Report Type: Spontaneous
  Country: US (occurrence: US)
  Receive Date: 20171220
  Receipt Date: 20171220
  Transmission Date: 20180321
  Serious: No
  Sender: FDA-Public Use
  Company Number: None

PATIENT
  Age: 26 Year
  Sex: Female
  Weight: 58.5 kg

DRUGS (6)
  1. IMMATREX [Concomitant]
  2. SWISS KIS [Concomitant]
  3. ADDERALL [Concomitant]
     Active Substance: AMPHETAMINE ASPARTATE\AMPHETAMINE SULFATE\DEXTROAMPHETAMINE SACCHARATE\DEXTROAMPHETAMINE SULFATE
  4. ENDEFEN [Concomitant]
  5. HYDROCODONE BITARTRATE AND ACETAMINOPHEN [Suspect]
     Active Substance: ACETAMINOPHEN\HYDROCODONE BITARTRATE
     Indication: RECTAL PROLAPSE
     Dosage: ?          QUANTITY:60 TABLET(S);?
     Route: 048
     Dates: start: 20171218, end: 20171219
  6. ESSENTIAL ENZYMES [Concomitant]

REACTIONS (8)
  - Confusional state [None]
  - Nausea [None]
  - Tunnel vision [None]
  - Diarrhoea [None]
  - Dizziness [None]
  - Product substitution issue [None]
  - Drug ineffective [None]
  - Malaise [None]

NARRATIVE: CASE EVENT DATE: 20171219
